FAERS Safety Report 4267147-4 (Version None)
Quarter: 2004Q1

REPORT INFORMATION
  Report Type: 
  Country: None (occurrence: None)
  Receive Date: 20040107
  Receipt Date: 20031218
  Transmission Date: 20041129
  Serious: Yes (Hospitalization)
  Sender: FDA-Public Use
  Company Number: JP_031202414

PATIENT
  Age: 35 Year
  Sex: Male
  Weight: 61 kg

DRUGS (2)
  1. HUMALOG [Suspect]
     Indication: DIABETES MELLITUS INSULIN-DEPENDENT
     Dosage: 26 U/DAY
     Dates: start: 20021023
  2. HUMULIN N [Concomitant]

REACTIONS (1)
  - KETOACIDOSIS [None]
